FAERS Safety Report 18576175 (Version 1)
Quarter: 2020Q4

REPORT INFORMATION
  Report Type: Report from Study
  Country: ZA (occurrence: ZA)
  Receive Date: 20201203
  Receipt Date: 20201203
  Transmission Date: 20210114
  Serious: Yes (Hospitalization, Other)
  Sender: FDA-Public Use
  Company Number: NVSC2020ZA317722

PATIENT
  Sex: Female

DRUGS (1)
  1. ENALAPRIL [Suspect]
     Active Substance: ENALAPRIL
     Indication: HYPERTENSION
     Dosage: 5 MG, UNKNOWN
     Route: 048

REACTIONS (5)
  - Dyspnoea [Unknown]
  - Fatigue [Unknown]
  - Pulmonary oedema [Unknown]
  - Orthopnoea [Unknown]
  - Peripheral swelling [Unknown]
